FAERS Safety Report 13973036 (Version 2)
Quarter: 2017Q3

REPORT INFORMATION
  Report Type: Spontaneous
  Country: FR (occurrence: FR)
  Receive Date: 20170914
  Receipt Date: 20170921
  Transmission Date: 20171128
  Serious: Yes (Life-Threatening, Hospitalization)
  Sender: FDA-Public Use
  Company Number: FR-PFIZER INC-2017391657

PATIENT
  Age: 74 Year
  Sex: Female

DRUGS (20)
  1. FARMORUBICIN [Suspect]
     Active Substance: EPIRUBICIN HYDROCHLORIDE
     Indication: BREAST CANCER
     Dosage: 86 MG, CYCLIC
     Route: 042
     Dates: start: 20170703
  2. LOVENOX [Concomitant]
     Active Substance: ENOXAPARIN SODIUM
     Dosage: 0.7 ML, 2X/DAY IN THE MORNING AND IN THE EVENING
     Route: 058
     Dates: start: 20170703
  3. LANSOPRAZOLE. [Concomitant]
     Active Substance: LANSOPRAZOLE
     Dosage: 30 MG, 1X/DAY IN THE MORNING
     Route: 048
     Dates: start: 20170620
  4. LEVOTHYROX [Concomitant]
     Active Substance: LEVOTHYROXINE
     Dosage: 75 UG, 1X/DAY IN THE MORNING
     Route: 048
  5. FORLAX [Concomitant]
     Active Substance: POLYETHYLENE GLYCOL 4000
     Dosage: 2 DF, DAILY
     Route: 048
     Dates: start: 20170620
  6. FLUOROURACIL. [Suspect]
     Active Substance: FLUOROURACIL
     Indication: BREAST CANCER
     Dosage: 850 MG, CYCLIC
     Route: 042
     Dates: start: 20170703
  7. FLUOROURACIL. [Suspect]
     Active Substance: FLUOROURACIL
     Dosage: 850 MG, CYCLIC
     Route: 042
     Dates: start: 20170724
  8. THERALENE [Concomitant]
     Active Substance: TRIMEPRAZINE
     Dosage: 90 GTT, 1X/DAY IN THE EVENING
     Route: 048
  9. OXYCONTIN [Concomitant]
     Active Substance: OXYCODONE HYDROCHLORIDE
     Dosage: 10 MG, 2X/DAY IN THE MORNING AND IN THE EVENING
     Route: 048
     Dates: start: 20170703
  10. HUMALOG [Concomitant]
     Active Substance: INSULIN LISPRO
     Dosage: 4 IU, 2X/DAY IN THE MORNING AND AT NOON
     Route: 058
     Dates: start: 20170703
  11. VENLAFAXINE [Concomitant]
     Active Substance: VENLAFAXINE HYDROCHLORIDE
     Dosage: 75 MG, 2X/DAY IN THE MORNING AND IN THE EVENING
     Route: 048
  12. FARMORUBICIN [Suspect]
     Active Substance: EPIRUBICIN HYDROCHLORIDE
     Dosage: 86 MG, CYCLIC
     Route: 042
     Dates: start: 20170724
  13. SOLUPRED [Concomitant]
     Active Substance: PREDNISOLONE
     Dosage: 60 MG, 1X/DAY
     Route: 048
     Dates: start: 20170703
  14. PARACETAMOL [Concomitant]
     Active Substance: ACETAMINOPHEN
     Dosage: 1 G, 3X/DAY
     Route: 048
     Dates: start: 20170703
  15. XEROQUEL [Concomitant]
     Active Substance: QUETIAPINE FUMARATE
     Dosage: 300 MG, 1X/DAY IN THE EVENING
     Route: 048
  16. ENDOXAN [Suspect]
     Active Substance: CYCLOPHOSPHAMIDE
     Dosage: 860 MG, CYCLIC
     Route: 042
     Dates: start: 20170724
  17. LANSOYL [Concomitant]
     Active Substance: MINERAL OIL
     Dosage: UNK
     Route: 048
     Dates: start: 20170711
  18. ALPRAZOLAM. [Concomitant]
     Active Substance: ALPRAZOLAM
     Dosage: 0.5 MG, 3X/DAY
     Route: 048
  19. ENDOXAN [Suspect]
     Active Substance: CYCLOPHOSPHAMIDE
     Indication: BREAST CANCER
     Dosage: 860 MG, CYCLIC
     Route: 042
     Dates: start: 20170703
  20. OXYNORM [Concomitant]
     Active Substance: OXYCODONE HYDROCHLORIDE
     Dosage: 5 MG, AS NEEDED
     Route: 048
     Dates: start: 20170703

REACTIONS (2)
  - Pulmonary oedema [Recovered/Resolved]
  - Cardiac failure acute [Recovered/Resolved]

NARRATIVE: CASE EVENT DATE: 20170730
